FAERS Safety Report 5991113-1 (Version None)
Quarter: 2008Q4

REPORT INFORMATION
  Report Type: 
  Country: None (occurrence: None)
  Receive Date: 20081209
  Receipt Date: 20080826
  Transmission Date: 20090506
  Serious: No
  Sender: FDA-Public Use
  Company Number: US024496

PATIENT
  Age: 35 Year
  Sex: Female
  Weight: 98.8842 kg

DRUGS (13)
  1. FENTORA [Suspect]
     Indication: BACK PAIN
     Dosage: 300 UG QID PRN BUCCAL
     Route: 002
     Dates: start: 20060201, end: 20060401
  2. FENTORA [Suspect]
     Indication: BACK PAIN
     Dosage: 600 UG QID PRN BUCCAL
     Route: 002
     Dates: start: 20060401, end: 20071201
  3. FENTORA [Suspect]
     Indication: BACK PAIN
     Dosage: 400 UG QID PRN BUCCAL
     Route: 002
     Dates: start: 20071201
  4. KADIAN [Concomitant]
  5. REMERON [Concomitant]
  6. LASIX [Concomitant]
  7. NEXIUM [Concomitant]
  8. POTASSIUM CHLORIDE [Concomitant]
  9. PRILOSEC [Concomitant]
  10. ZANTAC [Concomitant]
  11. XANAX [Concomitant]
  12. RISPERDAL [Concomitant]
  13. SOMA [Concomitant]

REACTIONS (5)
  - DENTAL CARIES [None]
  - DRUG INEFFECTIVE [None]
  - DRUG PRESCRIBING ERROR [None]
  - SENSITIVITY OF TEETH [None]
  - TOOTHACHE [None]
